FAERS Safety Report 21220444 (Version 2)
Quarter: 2022Q3

REPORT INFORMATION
  Report Type: Spontaneous
  Country: FR (occurrence: FR)
  Receive Date: 20220817
  Receipt Date: 20220901
  Transmission Date: 20221026
  Serious: Yes (Life-Threatening)
  Sender: FDA-Public Use
  Company Number: None

PATIENT
  Age: 74 Year
  Sex: Female
  Weight: 46 kg

DRUGS (7)
  1. CLOPIDOGREL [Interacting]
     Active Substance: CLOPIDOGREL BISULFATE
     Indication: Cardiovascular event prophylaxis
     Dosage: UNIT DOSE : 75 MG, FREQUENCY TIME : 1 DAY, THERAPY START DATE : ASKU
     Route: 065
     Dates: end: 20210611
  2. KARDEGIC [Interacting]
     Active Substance: ASPIRIN DL-LYSINE
     Indication: Cardiovascular event prophylaxis
     Dosage: UNIT DOSE : 1 DOSAGE FORM, FREQUENCY TIME : 1 DAY, THERAPY START DATE : ASKU, STRENGTH  :75 MG, POWD
     Route: 065
     Dates: end: 20210611
  3. HEPARIN SODIUM [Interacting]
     Active Substance: HEPARIN SODIUM
     Indication: Angiocardiogram
     Dosage: UNIT DOSE : 5000 IU ,FREQUENCY TIME : TOTAL,  DURATION :1 DAY
     Route: 065
     Dates: start: 20210611, end: 20210611
  4. AMLODIPINE [Concomitant]
     Active Substance: AMLODIPINE BESYLATE
     Indication: Product used for unknown indication
     Dosage: UNIT DOSE : 5 MG, FREQUENCY TIME : 1 DAY, THERAPY START DATE : ASKU
  5. TELMISARTAN [Concomitant]
     Active Substance: TELMISARTAN
     Indication: Product used for unknown indication
     Dosage: UNIT DOSE : 80 MG,  FREQUENCY TIME : 1 DAY, THERAPY START DATE : ASKU
  6. BROMAZEPAM [Concomitant]
     Active Substance: BROMAZEPAM
     Indication: Product used for unknown indication
     Dosage: UNIT DOSE : 4.5 MG, , FREQUENCY TIME : 1 DAY, THERAPY START DATE : ASKU
  7. EZETIMIBE\SIMVASTATIN [Concomitant]
     Active Substance: EZETIMIBE\SIMVASTATIN
     Indication: Product used for unknown indication
     Dosage: STRENGTH  : 10 MG/20 MG , UNIT DOSE : 1 DOSAGE FORM, FREQUENCY TIME : 1 DAY, THERAPY START DATE : AS

REACTIONS (2)
  - Shock haemorrhagic [Recovered/Resolved]
  - Drug interaction [Recovered/Resolved]

NARRATIVE: CASE EVENT DATE: 20210611
